FAERS Safety Report 12572801 (Version 2)
Quarter: 2016Q4

REPORT INFORMATION
  Report Type: Spontaneous
  Country: US (occurrence: US)
  Receive Date: 20160720
  Receipt Date: 20161012
  Transmission Date: 20170207
  Serious: No
  Sender: FDA-Public Use
  Company Number: US-TEVA-669026USA

PATIENT
  Sex: Female

DRUGS (1)
  1. ZECUITY [Suspect]
     Active Substance: SUMATRIPTAN SUCCINATE
     Indication: MIGRAINE
     Route: 062
     Dates: start: 201604, end: 201604

REACTIONS (12)
  - Application site paraesthesia [Recovered/Resolved]
  - Application site discomfort [Recovered/Resolved]
  - Drug ineffective [Unknown]
  - Application site pruritus [Recovered/Resolved]
  - Product adhesion issue [Unknown]
  - Application site irritation [Recovered/Resolved]
  - Application site papules [Recovered/Resolved]
  - Application site pain [Recovered/Resolved]
  - Application site inflammation [Recovered/Resolved]
  - Application site discolouration [Recovered/Resolved]
  - Application site warmth [Recovered/Resolved]
  - Application site erythema [Recovered/Resolved]

NARRATIVE: CASE EVENT DATE: 2016
